FAERS Safety Report 5941579-8 (Version None)
Quarter: 2008Q4

REPORT INFORMATION
  Report Type: 
  Country: None (occurrence: None)
  Receive Date: 20081104
  Receipt Date: 20081104
  Transmission Date: 20090506
  Serious: Yes (Life-Threatening, Hospitalization)
  Sender: FDA-Public Use
  Company Number: None

PATIENT
  Age: 80 Year
  Sex: Male
  Weight: 81.6475 kg

DRUGS (1)
  1. SEROQUEL [Suspect]
     Indication: DEMENTIA
     Dosage: 1 DOSE OCTOBER 13, 2008 PO
     Route: 048
     Dates: start: 20081013, end: 20081013

REACTIONS (11)
  - ABNORMAL BEHAVIOUR [None]
  - APHASIA [None]
  - CATATONIA [None]
  - DEPRESSION [None]
  - EYE DISORDER [None]
  - MOVEMENT DISORDER [None]
  - PNEUMONIA [None]
  - PYREXIA [None]
  - SUICIDAL IDEATION [None]
  - TONGUE PARALYSIS [None]
  - WEIGHT DECREASED [None]
